FAERS Safety Report 7823500-0 (Version None)
Quarter: 2011Q4

REPORT INFORMATION
  Report Type: 
  Country: None (occurrence: None)
  Receive Date: 20111019
  Receipt Date: 20111017
  Transmission Date: 20120403
  Serious: Yes (Other)
  Sender: FDA-Public Use
  Company Number: FR-PFIZER INC-2011026684

PATIENT
  Age: 62 Year
  Sex: Female

DRUGS (3)
  1. REVATIO [Suspect]
     Indication: PULMONARY HYPERTENSION
     Dosage: 20 MG, 3X/DAY
     Route: 048
     Dates: start: 20090701
  2. PREVISCAN [Concomitant]
     Dosage: UNK
  3. ZESTORETIC [Concomitant]
     Dosage: UNK

REACTIONS (7)
  - VISUAL ACUITY REDUCED [None]
  - VISUAL IMPAIRMENT [None]
  - PAIN [None]
  - CATARACT [None]
  - VISION BLURRED [None]
  - ERYTHEMA [None]
  - PHOTOPHOBIA [None]
